FAERS Safety Report 7445604-7 (Version None)
Quarter: 2011Q2

REPORT INFORMATION
  Report Type: 
  Country: None (occurrence: None)
  Receive Date: 20110429
  Receipt Date: 20110420
  Transmission Date: 20111010
  Serious: Yes (Hospitalization, Other)
  Sender: FDA-Public Use
  Company Number: JP-ROCHE-771626

PATIENT
  Sex: Female

DRUGS (8)
  1. PYDOXAL [Concomitant]
     Route: 048
     Dates: start: 20110118, end: 20110410
  2. CAPECITABINE [Suspect]
     Indication: BREAST CANCER METASTATIC
     Dosage: 2 WEEKS ADMINISTRATION FOLLOWED BY 1 WEEK REST
     Route: 048
     Dates: start: 20110118, end: 20110405
  3. MUCOSTA [Concomitant]
     Route: 048
     Dates: start: 20110322, end: 20110410
  4. ANTEBATE [Concomitant]
     Dosage: TAKEN AS NEEDED. DOSAGE ADJUSTED, FORM: OINTMENT AND CREAM
     Route: 003
     Dates: start: 20110208
  5. PURSENNID [Concomitant]
     Dosage: TAKEN AS NEEDED. 12-24MG
     Route: 048
     Dates: start: 20100803, end: 20110410
  6. DOCETAXEL [Suspect]
     Indication: BREAST CANCER METASTATIC
     Route: 041
     Dates: start: 20100803, end: 20101228
  7. DRENISON [Concomitant]
     Dosage: TAKEN AS NEEDED. DOSAGE ADJUSTED.  DOSE FORM: TAPE.
     Route: 003
     Dates: start: 20110208
  8. UREPEARL [Concomitant]
     Dosage: DOSAGE ADJUSTED ARBITRARILY
     Route: 003
     Dates: start: 20110118

REACTIONS (13)
  - INTRACRANIAL PRESSURE INCREASED [None]
  - EYE MOVEMENT DISORDER [None]
  - DECREASED APPETITE [None]
  - METASTASES TO MENINGES [None]
  - MALNUTRITION [None]
  - BACK PAIN [None]
  - HEADACHE [None]
  - PALMAR-PLANTAR ERYTHRODYSAESTHESIA SYNDROME [None]
  - DEPRESSED LEVEL OF CONSCIOUSNESS [None]
  - PYREXIA [None]
  - NECK PAIN [None]
  - MALAISE [None]
  - OEDEMA PERIPHERAL [None]
